FAERS Safety Report 4938786-X (Version None)
Quarter: 2006Q1

REPORT INFORMATION
  Report Type: 
  Country: None (occurrence: None)
  Receive Date: 20060306
  Receipt Date: 20060221
  Transmission Date: 20060701
  Serious: No
  Sender: FDA-Public Use
  Company Number: 06H-163-0305779-00

PATIENT
  Age: 46 Year
  Sex: Male

DRUGS (2)
  1. LORAZEPAM [Suspect]
     Indication: AGITATION
     Dosage: 2 MG, INTRAMUSCULAR
     Route: 030
  2. OLANZAPINE [Suspect]
     Indication: ACUTE PSYCHOSIS
     Dosage: 10 MG, INTRAMUSCULAR
     Route: 030

REACTIONS (2)
  - DRUG INTERACTION [None]
  - HYPOTENSION [None]
